FAERS Safety Report 12851940 (Version 1)
Quarter: 2016Q4

REPORT INFORMATION
  Report Type: Spontaneous
  Country: US (occurrence: US)
  Receive Date: 20161014
  Receipt Date: 20161014
  Transmission Date: 20170207
  Serious: Yes (Disabling, Other)
  Sender: FDA-Public Use
  Company Number: None

PATIENT
  Age: 49 Year
  Sex: Male
  Weight: 99 kg

DRUGS (5)
  1. VITAMIN D [Concomitant]
     Active Substance: CHOLECALCIFEROL
  2. TRACE MINERALS [Concomitant]
  3. CIPROFLOXIN [Suspect]
     Active Substance: CIPROFLOXACIN
     Indication: URINARY TRACT INFECTION
     Dosage: ?          QUANTITY:1 CAPSULE(S);?
     Route: 048
     Dates: start: 20150809, end: 20150816
  4. FISH OIL [Concomitant]
     Active Substance: FISH OIL
  5. VITAMIN K2 [Concomitant]
     Active Substance: MENAQUINONE 6

REACTIONS (12)
  - Chest pain [None]
  - Ulcer [None]
  - Abdominal pain upper [None]
  - Drug effect decreased [None]
  - Abdominal distension [None]
  - Impaired gastric emptying [None]
  - Neuropathy peripheral [None]
  - Blepharospasm [None]
  - Tendon pain [None]
  - Headache [None]
  - Insomnia [None]
  - Unevaluable event [None]

NARRATIVE: CASE EVENT DATE: 20150922
